FAERS Safety Report 16755621 (Version 1)
Quarter: 2019Q3

REPORT INFORMATION
  Report Type: Spontaneous
  Country: US (occurrence: US)
  Receive Date: 20190829
  Receipt Date: 20190829
  Transmission Date: 20191005
  Serious: Yes (Hospitalization)
  Sender: FDA-Public Use
  Company Number: US-CATALYST PHARMACEUTICALS, INC-2019CAT00349

PATIENT
  Age: 64 Year
  Sex: Male
  Weight: 80.73 kg

DRUGS (8)
  1. FIRDAPSE [Suspect]
     Active Substance: AMIFAMPRIDINE
     Dosage: 80 MG TOTAL DAILY DOSE (ALSO REPORTED AS 10 MG EVERY 5 HOURS)
     Route: 048
     Dates: start: 2019
  2. FIRDAPSE [Suspect]
     Active Substance: AMIFAMPRIDINE
     Indication: MYASTHENIC SYNDROME
     Dosage: 10 MG, 1X/DAY
     Route: 048
     Dates: start: 20190510, end: 2019
  3. FIRDAPSE [Suspect]
     Active Substance: AMIFAMPRIDINE
     Dosage: 20 MG, 1X/DAY
     Route: 048
     Dates: start: 2019, end: 2019
  4. HYDROCODONE/ACETAMINOPHEN [Concomitant]
     Active Substance: ACETAMINOPHEN\HYDROCODONE
     Indication: PAIN
     Dosage: 1 TABLETS, 4X/DAY
  5. DAILY MULTIVITAMIN [Concomitant]
     Active Substance: VITAMINS
  6. ELIQUIS [Concomitant]
     Active Substance: APIXABAN
  7. UNSPECIFIED STOMACH PILL [Concomitant]
  8. UNSPECIFIED BLOOD PRESSURE MEDICATIONS [Concomitant]
     Active Substance: UNSPECIFIED INGREDIENT

REACTIONS (4)
  - Gastrointestinal infection [Recovered/Resolved]
  - Weight decreased [Recovering/Resolving]
  - Musculoskeletal stiffness [Not Recovered/Not Resolved]
  - Therapeutic product effect incomplete [Not Recovered/Not Resolved]

NARRATIVE: CASE EVENT DATE: 2019
